FAERS Safety Report 13689865 (Version 3)
Quarter: 2017Q3

REPORT INFORMATION
  Report Type: Spontaneous
  Country: US (occurrence: US)
  Receive Date: 20170626
  Receipt Date: 20170904
  Transmission Date: 20171127
  Serious: Yes (Hospitalization, Other)
  Sender: FDA-Public Use
  Company Number: US-BAUSCH-BL-2017-019971

PATIENT
  Age: 51 Year
  Sex: Male

DRUGS (2)
  1. XIFAXAN [Suspect]
     Active Substance: RIFAXIMIN
     Indication: HEPATIC CIRRHOSIS
     Dosage: BEEN TAKING THE SUSPECT PRODUCT FOR MORE THAN A YEAR
     Route: 065
  2. METFORMIN [Suspect]
     Active Substance: METFORMIN HYDROCHLORIDE
     Indication: DIABETES MELLITUS
     Dosage: SEP OR OCT 2015
     Route: 065
     Dates: start: 2015

REACTIONS (4)
  - Hepatic cirrhosis [Unknown]
  - Coma [Recovered/Resolved]
  - Hypersensitivity [Recovered/Resolved]
  - Memory impairment [Unknown]

NARRATIVE: CASE EVENT DATE: 20151224
